FAERS Safety Report 8610120 (Version 8)
Quarter: 2013Q1

REPORT INFORMATION
  Report Type: Spontaneous
  Country: US (occurrence: US)
  Receive Date: 20120612
  Receipt Date: 20130318
  Transmission Date: 20140127
  Serious: Yes (Hospitalization, Other)
  Sender: FDA-Public Use
  Company Number: US-SANOFI-AVENTIS-2011SA048596

PATIENT
  Age: 70 Year
  Sex: Male
  Weight: 100 kg

DRUGS (14)
  1. PLAVIX [Suspect]
     Indication: CEREBROVASCULAR ACCIDENT PROPHYLAXIS
     Route: 048
     Dates: start: 200703, end: 20080804
  2. PLAVIX [Suspect]
     Indication: CARDIAC FAILURE CONGESTIVE
     Route: 048
     Dates: start: 200703, end: 20080804
  3. ASA [Concomitant]
  4. COREG [Concomitant]
     Route: 048
  5. COREG [Concomitant]
     Route: 048
  6. METOPROLOL [Concomitant]
  7. POTASSIUM [Concomitant]
  8. LISINOPRIL [Concomitant]
     Route: 048
  9. LASIX [Concomitant]
     Route: 048
  10. ASPIRIN [Concomitant]
     Route: 048
  11. SALBUTAMOL SULFATE [Concomitant]
     Dosage: INHALTION AEROSOL SOLUTION,INHALE 2 PUFFS EVERY 4 HOURS AS NEEDED
  12. IPRATROPIUM BROMIDE/SALBUTAMOL SULFATE [Concomitant]
     Dosage: INHALATION AEROSOL;INFIALE 2 PLTFFS EVERY 4-6 HOUTRS AS NEEDED.;
  13. FUROSEMIDE [Concomitant]
     Route: 048
  14. COZAAR [Concomitant]
     Route: 048

REACTIONS (15)
  - Chest pain [Recovered/Resolved]
  - Coronary artery occlusion [Unknown]
  - Haemorrhagic stroke [Recovered/Resolved]
  - Dysarthria [Unknown]
  - Headache [Recovered/Resolved]
  - Hypertension [Unknown]
  - Hemiparesis [Unknown]
  - Pain in extremity [Unknown]
  - Balance disorder [Unknown]
  - Gait disturbance [Unknown]
  - Proteinuria [Unknown]
  - Fatigue [Recovered/Resolved]
  - Blood urea increased [Unknown]
  - Cough [Unknown]
  - Respiratory tract congestion [Unknown]
